FAERS Safety Report 8739336 (Version 3)
Quarter: 2012Q4

REPORT INFORMATION
  Report Type: 
  Country: BR (occurrence: BR)
  Receive Date: 20120823
  Receipt Date: 20120904
  Transmission Date: 20130627
  Serious: Yes (Other)
  Sender: FDA-Public Use
  Company Number: BR-PFIZER INC-2012203524

PATIENT
  Age: 26 Year
  Sex: Male

DRUGS (1)
  1. CHAMPIX [Suspect]
     Indication: SMOKING CESSATION THERAPY
     Dosage: UNK
     Route: 048
     Dates: start: 20120603, end: 2012

REACTIONS (6)
  - Suicide attempt [Unknown]
  - Physical assault [Unknown]
  - Depression [Unknown]
  - Aggression [Unknown]
  - Psychotic disorder [Unknown]
  - Crying [Unknown]
